FAERS Safety Report 10153272 (Version 1)
Quarter: 2014Q2

REPORT INFORMATION
  Report Type: Spontaneous
  Country: PL (occurrence: PL)
  Receive Date: 20140505
  Receipt Date: 20140505
  Transmission Date: 20141212
  Serious: Yes (Other)
  Sender: FDA-Public Use
  Company Number: PL-PFIZER INC-2014118753

PATIENT
  Age: 34 Year
  Sex: Male
  Weight: 100 kg

DRUGS (2)
  1. DALACIN C [Suspect]
     Indication: SKIN ULCER
     Dosage: 3X1
     Dates: start: 20131130, end: 20131204
  2. ETHACRIDINE [Suspect]
     Indication: SKIN ULCER
     Dosage: 1X1
     Route: 061
     Dates: start: 20131130, end: 20131206

REACTIONS (2)
  - Erythema [Recovering/Resolving]
  - Drug eruption [Recovering/Resolving]
